FAERS Safety Report 9275151 (Version 1)
Quarter: 2013Q2

REPORT INFORMATION
  Report Type: Spontaneous
  Country: US (occurrence: None)
  Receive Date: 20130501
  Receipt Date: 20130501
  Transmission Date: 20140414
  Serious: Yes (Disabling, Other)
  Sender: FDA-Public Use
  Company Number: None

PATIENT
  Age: 70 Year
  Sex: Male
  Weight: 106.96 kg

DRUGS (1)
  1. KYPROLIS [Suspect]
     Indication: PLASMA CELL MYELOMA
     Dosage: 47 MG DAY 1, 2, AND 8
     Route: 041
     Dates: start: 20130401, end: 20130408

REACTIONS (6)
  - Brain natriuretic peptide increased [None]
  - Pleuritic pain [None]
  - Pulmonary oedema [None]
  - Left atrial dilatation [None]
  - Dilatation ventricular [None]
  - Pulmonary hypertension [None]
